FAERS Safety Report 9164869 (Version 1)
Quarter: 2013Q1

REPORT INFORMATION
  Report Type: Spontaneous
  Country: BR (occurrence: None)
  Receive Date: 20130222
  Receipt Date: 20130222
  Transmission Date: 20140127
  Serious: Yes (Other)
  Sender: FDA-Public Use
  Company Number: DSU-2013-01480

PATIENT
  Age: 77 Year
  Sex: Female
  Weight: 100 kg

DRUGS (7)
  1. OLMETEC HCT [Suspect]
     Indication: HYPERTENSION
     Route: 048
     Dates: start: 2003
  2. ENALAPRIL  (ENALAPRIL)(20 MILLIGRAM, TABLET) (ENALAPRIL) [Concomitant]
  3. AZUKON MR(GLICLAZIDE) (TABLET) (GLICLAZIDE) [Concomitant]
  4. CIPROFIBRATE(CIPROFIBRATE)(TABLET)(CIPROFIBRATE) [Concomitant]
  5. CRESTOR(ROSUVASTATIN)(TABLET)(ROSUVASTATIN) [Concomitant]
  6. JANUVIA(SITAGLIPTIN PHOSPHATE)(TABLET)(SITAGLIPTIN PHOSPHATE) [Concomitant]
  7. PANTOPRAZOLE(PANTOPRAZOLE)(TABLET)(PANTOPRAZOLE) [Concomitant]

REACTIONS (7)
  - Wheelchair user [None]
  - Deafness [None]
  - Cardiac disorder [None]
  - Angioplasty [None]
  - Gait disturbance [None]
  - Pain in extremity [None]
  - Spinal pain [None]
